FAERS Safety Report 7451244-6 (Version None)
Quarter: 2011Q2

REPORT INFORMATION
  Report Type: 
  Country: None (occurrence: None)
  Receive Date: 20110502
  Receipt Date: 20090731
  Transmission Date: 20111010
  Serious: Yes (Death, Other)
  Sender: FDA-Public Use
  Company Number: US-BAYER-200928763NA

PATIENT
  Age: 77 Year
  Sex: Male
  Weight: 75 kg

DRUGS (10)
  1. WHOLE BLOOD [Concomitant]
     Dosage: 1 UNIT
     Dates: start: 20041011
  2. RED BLOOD CELLS [Concomitant]
     Dosage: 2 UNITS
     Dates: start: 20041013
  3. ALPRAZOLAM GENERICS [Concomitant]
  4. HYDROCHLOROTHIAZIDE [Concomitant]
  5. TRASYLOL [Suspect]
     Indication: CORONARY ARTERY BYPASS
     Dosage: 1 MU
     Route: 042
     Dates: start: 20041011
  6. NITROGLYCERIN [Concomitant]
     Dosage: UNK
     Dates: start: 20041011
  7. EPINEPHRINE [Concomitant]
     Dosage: 4 MCG/KG/MIN
     Dates: start: 20041011
  8. CLONIDINE [Concomitant]
  9. AMIODARONE [Concomitant]
     Dosage: BOLUS THEN DRIP STARTED
     Dates: start: 20041012
  10. DOBUTAMINE HYDROCHLORIDE [Concomitant]
     Dosage: 5MCG/KG/MIN
     Dates: start: 20041012

REACTIONS (13)
  - RENAL INJURY [None]
  - ANXIETY [None]
  - EMOTIONAL DISTRESS [None]
  - DEATH [None]
  - STRESS [None]
  - INJURY [None]
  - PAIN [None]
  - CARDIOGENIC SHOCK [None]
  - RENAL IMPAIRMENT [None]
  - MULTI-ORGAN FAILURE [None]
  - RENAL FAILURE [None]
  - UNEVALUABLE EVENT [None]
  - FEAR [None]
